FAERS Safety Report 19081239 (Version 1)
Quarter: 2021Q1

REPORT INFORMATION
  Report Type: Report from Study
  Country: FR (occurrence: FR)
  Receive Date: 20210331
  Receipt Date: 20210331
  Transmission Date: 20210420
  Serious: Yes (Other)
  Sender: FDA-Public Use
  Company Number: FR-BIOMARINAP-FR-2021-135728

PATIENT
  Age: 28 Year
  Sex: Female

DRUGS (4)
  1. CARBIDOPA + L?DOPA [Concomitant]
     Active Substance: CARBIDOPA\LEVODOPA
     Indication: TETRAHYDROBIOPTERIN DEFICIENCY
     Dosage: UNK, TID
     Route: 048
     Dates: start: 1998
  2. KUVAN [Suspect]
     Active Substance: SAPROPTERIN DIHYDROCHLORIDE
     Indication: TETRAHYDROBIOPTERIN DEFICIENCY
     Dosage: 100 MILLIGRAM, QD
     Route: 048
     Dates: start: 200906
  3. CARBIDOPA + L?DOPA [Concomitant]
     Active Substance: CARBIDOPA\LEVODOPA
     Dosage: UNK, QD
     Route: 048
     Dates: start: 1998
  4. OXITRIPTAN [Concomitant]
     Active Substance: OXITRIPTAN
     Indication: TETRAHYDROBIOPTERIN DEFICIENCY
     Dosage: 50 MILLIGRAM
     Route: 048
     Dates: start: 1998

REACTIONS (1)
  - Maternal exposure during pregnancy [Recovered/Resolved]
